FAERS Safety Report 8153836-8 (Version None)
Quarter: 2012Q1

REPORT INFORMATION
  Report Type: 
  Country: None (occurrence: None)
  Receive Date: 20120221
  Receipt Date: 20120209
  Transmission Date: 20120608
  Serious: Yes (Hospitalization)
  Sender: FDA-Public Use
  Company Number: US-ELI_LILLY_AND_COMPANY-US201202003271

PATIENT
  Age: 73 Year
  Sex: Female

DRUGS (15)
  1. FUROSEMIDE [Concomitant]
  2. ACETAMINOPHEN AND HYDROCODONE BITARTRATE [Concomitant]
  3. KLOR-CON [Concomitant]
  4. LEVOTHYROXINE SODIUM [Concomitant]
  5. LIPITOR [Concomitant]
  6. NIASPAN [Concomitant]
  7. FORTEO [Suspect]
     Indication: OSTEOPOROSIS
     Dosage: 20 UG, QD
     Route: 065
  8. VITAMIN D [Concomitant]
  9. AMLODIPINE BESYLATE [Concomitant]
  10. LISINOPRIL [Concomitant]
  11. CALTRATE                           /00751519/ [Concomitant]
  12. PREDNISONE [Concomitant]
  13. ASPIRIN [Concomitant]
     Dosage: UNK, QD
  14. CYCLOSPORINE [Concomitant]
  15. FENOFIBRATE [Concomitant]

REACTIONS (2)
  - SPINAL FRACTURE [None]
  - DRUG DOSE OMISSION [None]
